FAERS Safety Report 6668982-5 (Version None)
Quarter: 2010Q2

REPORT INFORMATION
  Report Type: 
  Country: None (occurrence: None)
  Receive Date: 20100406
  Receipt Date: 20100329
  Transmission Date: 20101027
  Serious: Yes (Hospitalization)
  Sender: FDA-Public Use
  Company Number: US-BAYER-201018042NA

PATIENT
  Age: 19 Year
  Sex: Female

DRUGS (1)
  1. MIRENA [Suspect]
     Indication: CONTRACEPTION
     Dosage: FREQUENCY: CONTINUOUS
     Route: 015
     Dates: start: 20040101, end: 20090101

REACTIONS (9)
  - DEPRESSION [None]
  - INFECTION [None]
  - MIGRAINE [None]
  - OVARIAN CYST [None]
  - PAIN [None]
  - PELVIC INFLAMMATORY DISEASE [None]
  - PROCEDURAL PAIN [None]
  - THYROID DISORDER [None]
  - WEIGHT INCREASED [None]
